FAERS Safety Report 13599671 (Version 4)
Quarter: 2018Q1

REPORT INFORMATION
  Report Type: Spontaneous
  Country: GB (occurrence: GB)
  Receive Date: 20170601
  Receipt Date: 20180131
  Transmission Date: 20180508
  Serious: Yes (Hospitalization, Other)
  Sender: FDA-Public Use
  Company Number: GB-MYLANLABS-2017M1031868

PATIENT
  Age: 44 Year
  Sex: Female

DRUGS (2)
  1. CLOZARIL [Suspect]
     Active Substance: CLOZAPINE
     Dosage: UNK
     Route: 048
     Dates: start: 20170523
  2. CLOZARIL [Suspect]
     Active Substance: CLOZAPINE
     Indication: SCHIZOPHRENIA
     Dosage: UNK
     Route: 048
     Dates: start: 20010501

REACTIONS (7)
  - Syncope [Unknown]
  - Drug dispensing error [Unknown]
  - Diabetes mellitus [Unknown]
  - Fall [Unknown]
  - Hypoglycaemia [Unknown]
  - Therapy cessation [Unknown]
  - Ankle fracture [Unknown]

NARRATIVE: CASE EVENT DATE: 2017
